FAERS Safety Report 8153353-5 (Version None)
Quarter: 2012Q1

REPORT INFORMATION
  Report Type: 
  Country: None (occurrence: None)
  Receive Date: 20120221
  Receipt Date: 20120216
  Transmission Date: 20120608
  Serious: Yes (Hospitalization)
  Sender: FDA-Public Use
  Company Number: US-PFIZER INC-2011080002

PATIENT
  Age: 41 Year
  Sex: Female
  Weight: 100 kg

DRUGS (6)
  1. EMBEDA [Suspect]
     Indication: BACK PAIN
  2. NALTREXONE HYDROCHLORIDE [Suspect]
     Indication: FIBROMYALGIA
     Dosage: UNK
     Dates: start: 20110322
  3. MORPHINE SULFATE [Suspect]
     Indication: FIBROMYALGIA
     Dosage: UNK
     Dates: start: 20110322
  4. EMBEDA [Suspect]
     Indication: FIBROMYALGIA
     Dosage: UNK
     Route: 048
     Dates: end: 20110301
  5. MORPHINE SULFATE [Suspect]
     Indication: BACK PAIN
  6. NALTREXONE HYDROCHLORIDE [Suspect]
     Indication: BACK PAIN

REACTIONS (1)
  - WITHDRAWAL SYNDROME [None]
